FAERS Safety Report 16086003 (Version 1)
Quarter: 2019Q1

REPORT INFORMATION
  Report Type: Spontaneous
  Country: IT (occurrence: IT)
  Receive Date: 20190318
  Receipt Date: 20190318
  Transmission Date: 20190418
  Serious: Yes (Hospitalization)
  Sender: FDA-Public Use
  Company Number: IT-TEVA-2019-IT-1024648

PATIENT
  Age: 76 Year
  Sex: Male

DRUGS (6)
  1. ZOLOFT [Concomitant]
     Active Substance: SERTRALINE HYDROCHLORIDE
  2. EBIXA 10 MG FILM-COATED TABLETS [Concomitant]
  3. CLOPIDOGREL [Suspect]
     Active Substance: CLOPIDOGREL BISULFATE
     Indication: ANTICOAGULANT THERAPY
     Dosage: 75 MILLIGRAM DAILY;
     Route: 048
     Dates: start: 20170101, end: 20190225
  4. LUCEN [Concomitant]
     Active Substance: ESOMEPRAZOLE
  5. SIVASTIN [Concomitant]
     Active Substance: SIMVASTATIN
  6. MEMAC. [Concomitant]

REACTIONS (2)
  - Haematemesis [Unknown]
  - Rectal haemorrhage [Unknown]

NARRATIVE: CASE EVENT DATE: 20190226
